FAERS Safety Report 11173292 (Version 2)
Quarter: 2015Q2

REPORT INFORMATION
  Report Type: Spontaneous
  Country: DE (occurrence: DE)
  Receive Date: 20150608
  Receipt Date: 20150612
  Transmission Date: 20150821
  Serious: Yes (Life-Threatening, Other)
  Sender: FDA-Public Use
  Company Number: PHHY2015DE067204

PATIENT
  Sex: Male

DRUGS (6)
  1. FLUDARABINE [Concomitant]
     Active Substance: FLUDARABINE PHOSPHATE
     Indication: CHEMOTHERAPY
     Route: 065
  2. TREOSULFAN [Concomitant]
     Active Substance: TREOSULFAN
     Dosage: 63 MG, (30 MG PER SQM), QD FOR 5 DAYS
     Route: 065
  3. JAKAFI [Suspect]
     Active Substance: RUXOLITINIB
     Indication: MYELOPROLIFERATIVE DISORDER
  4. JAKAFI [Suspect]
     Active Substance: RUXOLITINIB
     Indication: MYELOFIBROSIS
     Route: 065
     Dates: start: 201404
  5. CICLOSPORIN [Suspect]
     Active Substance: CYCLOSPORINE
     Indication: STEM CELL TRANSPLANT
     Route: 065
  6. TREOSULFAN [Concomitant]
     Active Substance: TREOSULFAN
     Indication: CHEMOTHERAPY
     Dosage: 25 MG, QD (12 MG PER SQM) FOR 3 DAYS
     Route: 065

REACTIONS (18)
  - Aspiration [Unknown]
  - Splenomegaly [Unknown]
  - Sepsis [Unknown]
  - Respiratory gas exchange disorder [Unknown]
  - Blister [Unknown]
  - Renal failure [Unknown]
  - Pulmonary haemorrhage [Unknown]
  - Mucosal haemorrhage [Unknown]
  - Acute myeloid leukaemia [Unknown]
  - Mucosal inflammation [Unknown]
  - Skin disorder [Unknown]
  - Leukocytosis [Unknown]
  - Pyrexia [Unknown]
  - Thrombocytopenia [Unknown]
  - Haematoma [Unknown]
  - Oral mucosa haematoma [Unknown]
  - Haemoglobin decreased [Unknown]
  - Off label use [Unknown]
